FAERS Safety Report 5233379-1 (Version None)
Quarter: 2007Q1

REPORT INFORMATION
  Report Type: 
  Country: None (occurrence: None)
  Receive Date: 20070206
  Receipt Date: 20070123
  Transmission Date: 20070707
  Serious: Yes (Other)
  Sender: FDA-Public Use
  Company Number: US019256

PATIENT
  Age: 41 Year
  Sex: Male

DRUGS (11)
  1. FENTORA [Suspect]
     Indication: BACK PAIN
     Dosage: 800 UG QD BUCCAL
     Route: 002
  2. FENTORA [Suspect]
     Indication: SURGERY
     Dosage: 800 UG QD BUCCAL
     Route: 002
  3. CYMBALTA [Suspect]
     Indication: DRUG USE FOR UNKNOWN INDICATION
  4. OPANA [Concomitant]
  5. AMBIEN [Concomitant]
  6. NEURONTIN [Concomitant]
  7. AMITRIPTYLINE HCL [Concomitant]
  8. FENTANYL [Concomitant]
  9. FLEXERIL [Concomitant]
  10. OXYCODONE HCL [Concomitant]
  11. VIAGRA [Concomitant]

REACTIONS (3)
  - DELIRIUM [None]
  - DRUG WITHDRAWAL SYNDROME [None]
  - SEROTONIN SYNDROME [None]
